FAERS Safety Report 9464968 (Version 1)
Quarter: 2013Q3

REPORT INFORMATION
  Report Type: Spontaneous
  Country: US (occurrence: US)
  Receive Date: 20130819
  Receipt Date: 20130819
  Transmission Date: 20140515
  Serious: No
  Sender: FDA-Public Use
  Company Number: US-TEVA-424319USA

PATIENT
  Sex: Male

DRUGS (1)
  1. NUVIGIL [Suspect]
     Indication: DEPRESSION
     Route: 048

REACTIONS (3)
  - Feeling jittery [Unknown]
  - Agitation [Unknown]
  - Off label use [Unknown]
